FAERS Safety Report 7225365-7 (Version None)
Quarter: 2011Q1

REPORT INFORMATION
  Report Type: 
  Country: None (occurrence: None)
  Receive Date: 20110113
  Receipt Date: 20110106
  Transmission Date: 20110831
  Serious: Yes (Other)
  Sender: FDA-Public Use
  Company Number: TR-WATSON-2011-00242

PATIENT
  Age: 45 Year
  Sex: Male

DRUGS (1)
  1. METHYLPREDNISOLONE ACETATE [Suspect]
     Indication: BACK PAIN
     Dosage: 80 MG, SINGLE
     Route: 008

REACTIONS (1)
  - CHORIORETINOPATHY [None]
